FAERS Safety Report 7275012-3 (Version None)
Quarter: 2011Q1

REPORT INFORMATION
  Report Type: 
  Country: None (occurrence: None)
  Receive Date: 20110204
  Receipt Date: 20110125
  Transmission Date: 20110831
  Serious: Yes (Other)
  Sender: FDA-Public Use
  Company Number: JP-SANOFI-AVENTIS-2011SA004688

PATIENT
  Age: 79 Year
  Sex: Female
  Weight: 44.5 kg

DRUGS (9)
  1. SENNOSIDE A [Concomitant]
     Dates: start: 20090410
  2. BASEN [Concomitant]
     Dates: start: 20100830
  3. DIGOXIN [Suspect]
     Dates: start: 20040109
  4. GASTER [Concomitant]
     Dates: start: 20020215
  5. DRONEDARONE HCL [Suspect]
     Indication: ATRIAL FIBRILLATION
     Dates: start: 20110120, end: 20110124
  6. MAINTATE [Concomitant]
     Dates: start: 20080229
  7. WARFARIN SODIUM [Concomitant]
     Route: 048
     Dates: start: 20050718, end: 20110114
  8. WARFARIN SODIUM [Concomitant]
     Route: 048
     Dates: start: 20110115
  9. ROSUVASTATIN CALCIUM [Suspect]
     Dates: start: 20100430

REACTIONS (1)
  - CARDIAC FAILURE [None]
